FAERS Safety Report 7600532-9 (Version None)
Quarter: 2011Q3

REPORT INFORMATION
  Report Type: 
  Country: None (occurrence: None)
  Receive Date: 20110711
  Receipt Date: 20110706
  Transmission Date: 20111222
  Serious: Yes (Other)
  Sender: FDA-Public Use
  Company Number: US-SANOFI-AVENTIS-2011SA043103

PATIENT
  Age: 71 Year
  Sex: Male

DRUGS (8)
  1. PREDNISONE [Concomitant]
  2. SIMVASTATIN [Concomitant]
  3. UROXATRAL [Concomitant]
     Route: 048
  4. GLIPIZIDE [Concomitant]
  5. FOLIC ACID [Concomitant]
  6. ATENOLOL [Concomitant]
  7. PLAVIX [Suspect]
     Route: 048
     Dates: start: 19970101
  8. LISINOPRIL [Concomitant]

REACTIONS (4)
  - FAECAL INCONTINENCE [None]
  - MEDICATION RESIDUE [None]
  - PROSTATE CANCER [None]
  - FUNCTIONAL GASTROINTESTINAL DISORDER [None]
